FAERS Safety Report 4989752-X (Version None)
Quarter: 2006Q2

REPORT INFORMATION
  Report Type: 
  Country: None (occurrence: None)
  Receive Date: 20060501
  Receipt Date: 20060414
  Transmission Date: 20061013
  Serious: Yes (Hospitalization)
  Sender: FDA-Public Use
  Company Number: MEDI-0004419

PATIENT
  Age: 60 Year
  Sex: Male
  Weight: 72.1219 kg

DRUGS (5)
  1. ETHYOL [Suspect]
     Indication: RADIOTHERAPY
     Dosage: SUBCUTANEOUS
     Route: 058
     Dates: start: 20060404, end: 20060410
  2. CISPLATIN [Concomitant]
  3. TAXOTERE [Concomitant]
  4. F-FLU (FLUOROURACIL) [Concomitant]
  5. RADIATION THERAPY [Concomitant]

REACTIONS (3)
  - DIARRHOEA [None]
  - INFECTION [None]
  - RASH ERYTHEMATOUS [None]
